FAERS Safety Report 6728564-3 (Version None)
Quarter: 2010Q2

REPORT INFORMATION
  Report Type: 
  Country: None (occurrence: None)
  Receive Date: 20100517
  Receipt Date: 20100507
  Transmission Date: 20101027
  Serious: Yes (Other)
  Sender: FDA-Public Use
  Company Number: US-PFIZER INC-2010058823

PATIENT
  Sex: Female
  Weight: 79.365 kg

DRUGS (3)
  1. DEPO-PROVERA [Suspect]
     Indication: CONTRACEPTION
     Dosage: 150 MG, FIRST INJECTION
     Dates: start: 20091102, end: 20091102
  2. DEPO-PROVERA [Suspect]
     Dosage: 150 MG, SECOND INJECTION
     Dates: start: 20100118, end: 20100118
  3. AMPHETAM ASP/AMPHETAM SULF/DEXTROAMPHET SACC/DEXTROAMPHET SULF/ [Concomitant]
     Indication: ATTENTION DEFICIT/HYPERACTIVITY DISORDER
     Dosage: UNK
     Route: 048

REACTIONS (21)
  - ABDOMINAL DISTENSION [None]
  - ACNE [None]
  - ARTHRALGIA [None]
  - BACK PAIN [None]
  - DEPRESSION [None]
  - FATIGUE [None]
  - FLUSHING [None]
  - HAIR GROWTH ABNORMAL [None]
  - HEADACHE [None]
  - HOT FLUSH [None]
  - HYPERHIDROSIS [None]
  - HYPERSENSITIVITY [None]
  - INSOMNIA [None]
  - LIBIDO DECREASED [None]
  - LIP SWELLING [None]
  - METRORRHAGIA [None]
  - MUSCLE SPASMS [None]
  - SOMNOLENCE [None]
  - SWELLING FACE [None]
  - URTICARIA [None]
  - VAGINAL INFLAMMATION [None]
